FAERS Safety Report 4719189-X (Version None)
Quarter: 2005Q3

REPORT INFORMATION
  Report Type: 
  Country: None (occurrence: None)
  Receive Date: 20050720
  Receipt Date: 20050601
  Transmission Date: 20060218
  Serious: Yes (Other)
  Sender: FDA-Public Use
  Company Number: S05-CAN-02441-01

PATIENT
  Age: 50 Year
  Sex: Male

DRUGS (5)
  1. CITALOPRAM HYDROBROMIDE [Suspect]
     Dosage: 40 MG QD
  2. MARIJUANA (CANNABIS) [Suspect]
     Dosage: UNK
     Route: 065
  3. TOPIMAX (TOPIRAMATE) [Suspect]
     Dosage: 100 MG QD
  4. ZANAFLEX [Suspect]
     Dosage: 12 MG QD
  5. DIPHENHYDRAMINE HCL [Concomitant]

REACTIONS (5)
  - AGGRESSION [None]
  - DRUG WITHDRAWAL SYNDROME [None]
  - PERSONALITY CHANGE [None]
  - PSYCHOTIC DISORDER [None]
  - SPEECH DISORDER [None]
